FAERS Safety Report 4957852-6 (Version None)
Quarter: 2006Q1

REPORT INFORMATION
  Report Type: 
  Country: None (occurrence: None)
  Receive Date: 20060330
  Receipt Date: 20060309
  Transmission Date: 20060701
  Serious: Yes (Hospitalization)
  Sender: FDA-Public Use
  Company Number: 2006UW04021

PATIENT
  Age: 907 Month
  Sex: Female

DRUGS (3)
  1. TOPROL-XL [Suspect]
     Indication: HYPERTENSION
     Route: 048
     Dates: start: 20060221, end: 20060201
  2. VERELAN PM [Interacting]
     Indication: HYPERTENSION
     Dates: start: 20060222, end: 20060201
  3. HYZAAR [Concomitant]
     Dosage: 50/12.5

REACTIONS (8)
  - ASTHENIA [None]
  - CARDIAC ARREST [None]
  - DRUG INTERACTION [None]
  - DYSPNOEA [None]
  - HYPERTENSION [None]
  - MALAISE [None]
  - VENTRICULAR FIBRILLATION [None]
  - VOMITING [None]
